FAERS Safety Report 20534095 (Version 3)
Quarter: 2022Q1

REPORT INFORMATION
  Report Type: Report from Study
  Country: US (occurrence: None)
  Receive Date: 20220301
  Receipt Date: 20220325
  Transmission Date: 20220423
  Serious: Yes (Hospitalization, Other)
  Sender: FDA-Public Use
  Company Number: US-ROCHE-3030930

PATIENT
  Age: 49 Year
  Sex: Male
  Weight: 69.1 kg

DRUGS (10)
  1. ATEZOLIZUMAB [Suspect]
     Active Substance: ATEZOLIZUMAB
     Indication: Non-small cell lung cancer
     Route: 042
     Dates: start: 20210510, end: 20220116
  2. OXYCODONE [Concomitant]
     Active Substance: OXYCODONE
     Indication: Pain
     Dates: start: 20200302
  3. SENNA [Concomitant]
     Active Substance: SENNA LEAF\SENNOSIDES\SENNOSIDES A AND B
     Indication: Constipation
     Dates: start: 20200416
  4. GABAPENTIN [Concomitant]
     Active Substance: GABAPENTIN
     Indication: Pain
     Route: 065
     Dates: start: 20200416
  5. CYCLOBENZAPRINE [Concomitant]
     Active Substance: CYCLOBENZAPRINE
     Indication: Pain
     Route: 065
     Dates: start: 20200416
  6. OXYCONTIN [Concomitant]
     Active Substance: OXYCODONE HYDROCHLORIDE
     Indication: Pain
     Route: 065
     Dates: start: 20200416
  7. MELOXICAM [Concomitant]
     Active Substance: MELOXICAM
     Indication: Pain
     Route: 065
     Dates: start: 20210322
  8. OMEPRAZOLE [Concomitant]
     Active Substance: OMEPRAZOLE
     Route: 065
     Dates: start: 20210322
  9. MUCINEX [Concomitant]
     Active Substance: GUAIFENESIN
     Route: 065
     Dates: start: 202004
  10. MIRALAX [Concomitant]
     Active Substance: POLYETHYLENE GLYCOL 3350
     Indication: Constipation
     Route: 065
     Dates: start: 20200420

REACTIONS (3)
  - Wound infection [Recovered/Resolved]
  - Pain [Unknown]
  - Swelling [Unknown]

NARRATIVE: CASE EVENT DATE: 20220215
